FAERS Safety Report 7465818-X (Version None)
Quarter: 2011Q2

REPORT INFORMATION
  Report Type: 
  Country: None (occurrence: None)
  Receive Date: 20110509
  Receipt Date: 20100406
  Transmission Date: 20111010
  Serious: No
  Sender: FDA-Public Use
  Company Number: US-ALEXION-A201000396

PATIENT
  Sex: Female

DRUGS (42)
  1. ACETAMINOPHEN [Concomitant]
     Dosage: 650 MG, UNK
     Dates: start: 20090512
  2. AMITRIPTYLINE HCL [Concomitant]
     Dosage: 10 MG, UNK
     Dates: start: 20080924
  3. BUSPIRONE HCL [Concomitant]
     Dosage: 10 MG, UNK
     Dates: start: 20090918
  4. CLINDAMYCIN HCL [Concomitant]
     Dosage: TAKE 4 TABLS PRIOR TO DENTAL WORK
     Dates: start: 20081231
  5. HYDROCORTISONE [Concomitant]
     Dosage: 5 MG, 2 TABLETS EVERY MORNING AND 1 TABLET IN THE AFTERNOON
     Dates: start: 20090918
  6. NABUMETONE [Concomitant]
     Dosage: 750 MG, UNK
     Dates: start: 20090918
  7. SALINE                             /00075401/ [Concomitant]
     Dosage: UNK
     Dates: start: 20090304
  8. DOCUSATE SODIUM W/SENNA [Concomitant]
     Dosage: 1-2 TABS PRN AT BEDTIME
     Dates: start: 20100202
  9. VITAMIN C                          /00008001/ [Concomitant]
     Dosage: 500 MG, UNK
     Dates: start: 20090828
  10. ZOLPIDEM TARTRATE [Concomitant]
     Dosage: 10 MG, 1 TAB QHS PRN
     Dates: start: 20081105
  11. ACIDOPHILUS [Concomitant]
     Dosage: 2 TABS Q12H PRN
     Dates: start: 20090918
  12. ASPIRIN [Concomitant]
  13. CYMBALTA [Concomitant]
     Dosage: 30 MG, UNK
     Dates: start: 20090804
  14. FERROUS GLUCONATE [Concomitant]
     Dosage: 1 TABLET TID AFTER MEALS
     Dates: start: 20090623
  15. FISH OIL [Concomitant]
     Dosage: 1 TABLET BID
     Dates: start: 20100202
  16. OMEPRAZOLE [Concomitant]
     Dosage: UNK
     Dates: start: 20090918
  17. FUROSEMIDE [Concomitant]
     Dosage: 40 MG, UNK
     Dates: start: 20080318
  18. IBUPROFEN [Concomitant]
     Dosage: 400 MG, UNK
     Dates: start: 20090918
  19. VITAMIN B12                        /00091801/ [Concomitant]
     Dosage: UNK
     Dates: start: 20091216
  20. EUCERIN                            /01160201/ [Concomitant]
     Dosage: UNK
     Dates: start: 20090505
  21. FLUTICASONE PROPIONATE [Concomitant]
     Dosage: 2 SPRAYS IN EACH NOSTRIL
     Dates: start: 20081120
  22. GABAPENTIN [Concomitant]
     Dosage: 600 MG, TID
     Dates: start: 20081003
  23. VITAMIN B6 [Concomitant]
     Dosage: 50 MG, UNK
     Dates: start: 20070410
  24. CALCIUM D                          /01272001/ [Concomitant]
     Dosage: 2 TABLETS
     Dates: start: 20090403
  25. COMPOUND W [Concomitant]
     Dosage: 40% PAD
     Dates: start: 20091118
  26. JANTOVEN [Concomitant]
     Dosage: TAKE 2.5 MG WED AND SAT, 5 MG ALL OTHER DAYS
     Dates: start: 20091021
  27. MICONAZOLE [Concomitant]
     Indication: FUNGAL SKIN INFECTION
     Dosage: UNK
     Dates: start: 20090304
  28. POTASSIUM CHLORIDE [Concomitant]
     Dosage: 20 MEQ - 0.5 TABLET QD
     Dates: start: 20080422
  29. SERTRALINE HYDROCHLORIDE [Concomitant]
     Dosage: 100 MG, UNK
     Dates: start: 20091021
  30. HYDROCODONE BITARTRATE AND ACETAMINOPHEN [Concomitant]
     Dosage: 500 MG, UNK
     Dates: start: 20080602
  31. SOLIRIS [Suspect]
     Indication: PAROXYSMAL NOCTURNAL HAEMOGLOBINURIA
     Dosage: 600 MG, UNK
     Route: 042
     Dates: start: 20080301
  32. SOLIRIS [Suspect]
     Dosage: 900 MG, Q2WKS
     Route: 042
  33. CLARITIN                           /00917501/ [Concomitant]
     Dosage: 1 CAPSULE Q12H
     Dates: start: 20091103
  34. DOCUSATE SODIUM [Concomitant]
     Dosage: 100 MG, UNK
     Dates: start: 20100127
  35. HYDROCORTISONE [Concomitant]
     Dosage: CREAM, APPLY SPARINGLY TO AFFECTED AREAS BID PRN
     Dates: start: 20090918
  36. HYDROXYZINE HYDROCHLORIDE [Concomitant]
     Dosage: 25 MG, UNK
     Dates: start: 20090828
  37. LAMICTAL [Concomitant]
     Dosage: 25 MG, UNK
     Dates: start: 20091118
  38. LIDOCAINE [Concomitant]
     Dosage: 5% PATCH, APPLY TO AFFECTED AREA QD
     Dates: start: 20081215
  39. LIDOCAINE [Concomitant]
     Dosage: 3% CREAM
     Dates: start: 20090616
  40. MULTIVITAMINS PLUS IRON [Concomitant]
     Dosage: UNK
     Dates: start: 20090211
  41. PREMARIN [Concomitant]
     Dosage: 1 G, UNK
     Route: 067
     Dates: start: 20090828
  42. PROMETHAZINE HYDROCHLORIDE [Concomitant]
     Dosage: 25 MG, 1 TABLET Q4-6 H PRN
     Dates: start: 20070410

REACTIONS (1)
  - WOUND INFECTION STAPHYLOCOCCAL [None]
